FAERS Safety Report 5628016-8 (Version None)
Quarter: 2008Q1

REPORT INFORMATION
  Report Type: 
  Country: None (occurrence: None)
  Receive Date: 20080215
  Receipt Date: 20071227
  Transmission Date: 20080703
  Serious: Yes (Hospitalization)
  Sender: FDA-Public Use
  Company Number: ES-BRISTOL-MYERS SQUIBB COMPANY-14045843

PATIENT
  Age: 71 Year
  Sex: Male

DRUGS (7)
  1. PLAVIX [Interacting]
     Indication: ACUTE MYOCARDIAL INFARCTION
     Dosage: DOSE FORM=TABLET
     Route: 048
     Dates: start: 20060101
  2. TROMALYT [Interacting]
     Indication: ACUTE MYOCARDIAL INFARCTION
     Dosage: DOSE FORM=CAPSULE
     Route: 048
     Dates: start: 20060101
  3. LIPEMOL TABS [Suspect]
     Indication: ACUTE MYOCARDIAL INFARCTION
     Route: 048
     Dates: start: 20060101
  4. OMEPRAZOLE [Concomitant]
     Route: 048
     Dates: start: 20060301
  5. BISOPROLOL FUMARATE [Concomitant]
     Indication: ACUTE MYOCARDIAL INFARCTION
     Route: 048
     Dates: start: 20060101
  6. EZETROL [Concomitant]
     Indication: ACUTE MYOCARDIAL INFARCTION
     Route: 048
     Dates: start: 20060701
  7. IXIA [Concomitant]
     Indication: ACUTE MYOCARDIAL INFARCTION
     Route: 048
     Dates: start: 20060601

REACTIONS (3)
  - DRUG INTERACTION [None]
  - GASTRIC ULCER HAEMORRHAGE [None]
  - GASTROINTESTINAL HAEMORRHAGE [None]
